FAERS Safety Report 4316066-3 (Version None)
Quarter: 2004Q1

REPORT INFORMATION
  Report Type: 
  Country: None (occurrence: None)
  Receive Date: 20040310
  Receipt Date: 20040305
  Transmission Date: 20041129
  Serious: Yes (Hospitalization, Other)
  Sender: FDA-Public Use
  Company Number: FRWYE514116JAN04

PATIENT
  Age: 51 Year
  Sex: Female

DRUGS (3)
  1. EFFEXOR [Suspect]
     Indication: DEPRESSION
     Dosage: 0.05 G 3X PER 1 DAY
     Route: 048
     Dates: start: 20011201, end: 20040109
  2. TRANXENE [Concomitant]
  3. STILNOX (ZOLPIDEM) [Concomitant]

REACTIONS (3)
  - ECZEMA [None]
  - NIGHT SWEATS [None]
  - PRURIGO [None]
